FAERS Safety Report 15208131 (Version 1)
Quarter: 2018Q3

REPORT INFORMATION
  Report Type: Spontaneous
  Country: US (occurrence: US)
  Receive Date: 20180727
  Receipt Date: 20180727
  Transmission Date: 20181010
  Serious: No
  Sender: FDA-Public Use
  Company Number: US-HORIZON-BUP-0042-2018

PATIENT
  Age: 70 Year
  Sex: Female

DRUGS (7)
  1. VITAMIN B12 [Concomitant]
     Active Substance: CYANOCOBALAMIN
  2. AMLODIPINE [Concomitant]
     Active Substance: AMLODIPINE BESYLATE
  3. SINGULAIR [Concomitant]
     Active Substance: MONTELUKAST SODIUM
  4. BUPHENYL [Suspect]
     Active Substance: SODIUM PHENYLBUTYRATE
     Indication: UREA CYCLE DISORDER
     Dosage: 1500 MG THREE TIMES A DAY
     Route: 048
     Dates: start: 20161222
  5. ATIVAN [Concomitant]
     Active Substance: LORAZEPAM
  6. ARNUITY ELLIPTA INHALER [Concomitant]
  7. LEVOCETIRIZINE [Concomitant]
     Active Substance: LEVOCETIRIZINE

REACTIONS (2)
  - Headache [Recovered/Resolved]
  - Amino acid level increased [Unknown]
